FAERS Safety Report 12601771 (Version 4)
Quarter: 2016Q3

REPORT INFORMATION
  Report Type: Spontaneous
  Country: GR (occurrence: GR)
  Receive Date: 20160728
  Receipt Date: 20160829
  Transmission Date: 20161109
  Serious: Yes (Death, Hospitalization)
  Sender: FDA-Public Use
  Company Number: PHHY2016GR102702

PATIENT
  Age: 75 Year
  Sex: Male
  Weight: 86 kg

DRUGS (1)
  1. XOTERNA BREEZHALER [Suspect]
     Active Substance: GLYCOPYRRONIUM\INDACATEROL
     Indication: CHRONIC OBSTRUCTIVE PULMONARY DISEASE
     Dosage: UNK
     Route: 055

REACTIONS (2)
  - Coma [Unknown]
  - Brain cancer metastatic [Fatal]

NARRATIVE: CASE EVENT DATE: 2015
